FAERS Safety Report 12295272 (Version 2)
Quarter: 2016Q2

REPORT INFORMATION
  Report Type: Spontaneous
  Country: JP (occurrence: JP)
  Receive Date: 20160422
  Receipt Date: 20160629
  Transmission Date: 20160815
  Serious: Yes (Other)
  Sender: FDA-Public Use
  Company Number: JP-ACTAVIS-2016-08537

PATIENT
  Age: 74 Year
  Sex: Male

DRUGS (4)
  1. CALCIUM FOLINATE [Concomitant]
     Active Substance: LEUCOVORIN CALCIUM
     Indication: RECTAL CANCER
     Dosage: UNK UNK, CYCLICAL, 3 CYCLES
     Dates: start: 20130724
  2. CETUXIMAB [Suspect]
     Active Substance: CETUXIMAB
     Indication: RECTAL CANCER
     Dosage: UNK UNK, CYCLICAL, 2 CYCLES
     Route: 065
     Dates: start: 2013
  3. FLUOROURACIL. [Concomitant]
     Active Substance: FLUOROURACIL
     Indication: RECTAL CANCER
     Dosage: UNK UNK, CYCLICAL, 3 CYCLES
     Route: 065
     Dates: start: 20130724
  4. IRINOTECAN (UNKNOWN) [Suspect]
     Active Substance: IRINOTECAN
     Indication: RECTAL CANCER
     Dosage: 150 MG/M2, CYCLICAL, 3 CYCLES
     Route: 065
     Dates: start: 20130724

REACTIONS (2)
  - Neutropenia [Unknown]
  - Interstitial lung disease [Unknown]
